FAERS Safety Report 17863484 (Version 1)
Quarter: 2020Q2

REPORT INFORMATION
  Report Type: Report from Study
  Country: GB (occurrence: GB)
  Receive Date: 20200604
  Receipt Date: 20200604
  Transmission Date: 20200714
  Serious: Yes (Other)
  Sender: FDA-Public Use
  Company Number: PHHY2019GB209762

PATIENT
  Age: 68 Year
  Sex: Female

DRUGS (8)
  1. SENNA [Concomitant]
     Active Substance: SENNA LEAF\SENNOSIDES\SENNOSIDES A AND B
     Indication: CONSTIPATION
     Dosage: 2 DF, PRN
     Route: 048
     Dates: start: 20190314
  2. DIHYDROCODEINE [Concomitant]
     Active Substance: DIHYDROCODEINE
     Indication: PAIN
     Dosage: 30 MG, QDS/PRN
     Route: 048
     Dates: start: 20190314
  3. ETORICOXIB. [Concomitant]
     Active Substance: ETORICOXIB
     Indication: PAIN
     Dosage: 90 MG, PRN
     Route: 048
     Dates: start: 20181101
  4. METHOTREXATE. [Concomitant]
     Active Substance: METHOTREXATE
     Indication: PSORIATIC ARTHROPATHY
     Dosage: 15 MG, QW
     Route: 048
     Dates: start: 2004
  5. PARACETAMOL [Concomitant]
     Active Substance: ACETAMINOPHEN
     Indication: PAIN
     Dosage: 1 G, QDS/PRN
     Route: 048
     Dates: start: 20190314
  6. FOLIC ACID. [Concomitant]
     Active Substance: FOLIC ACID
     Indication: PROPHYLAXIS
     Dosage: UNK UNK, QW
     Route: 048
     Dates: start: 2004
  7. COSENTYX [Suspect]
     Active Substance: SECUKINUMAB
     Indication: PSORIATIC ARTHROPATHY
     Dosage: 300 MG
     Route: 058
     Dates: start: 20181219
  8. COSENTYX [Suspect]
     Active Substance: SECUKINUMAB
     Dosage: 300 MG
     Route: 058

REACTIONS (11)
  - Mass [Not Recovered/Not Resolved]
  - Abdominal distension [Recovering/Resolving]
  - Stasis dermatitis [Not Recovered/Not Resolved]
  - Flank pain [Not Recovered/Not Resolved]
  - Psoriasis [Not Recovered/Not Resolved]
  - Discomfort [Not Recovered/Not Resolved]
  - Skin weeping [Recovered/Resolved]
  - Nephrolithiasis [Recovering/Resolving]
  - Infection [Not Recovered/Not Resolved]
  - Cholelithiasis [Not Recovered/Not Resolved]
  - Inappropriate schedule of product administration [Not Recovered/Not Resolved]

NARRATIVE: CASE EVENT DATE: 20190610
